FAERS Safety Report 19291652 (Version 2)
Quarter: 2021Q3

REPORT INFORMATION
  Report Type: Spontaneous
  Country: TH (occurrence: TH)
  Receive Date: 20210523
  Receipt Date: 20210714
  Transmission Date: 20211014
  Serious: Yes (Other)
  Sender: FDA-Public Use
  Company Number: TH-B.I. PHARMACEUTICALS,INC./RIDGEFIELD-2021-BI-103902

PATIENT
  Age: 78 Year
  Sex: Female
  Weight: 64 kg

DRUGS (6)
  1. OFEV [Suspect]
     Active Substance: NINTEDANIB
     Indication: IDIOPATHIC PULMONARY FIBROSIS
     Dates: start: 201901, end: 201903
  2. OFEV [Suspect]
     Active Substance: NINTEDANIB
     Dates: start: 201906, end: 2019
  3. OFEV [Suspect]
     Active Substance: NINTEDANIB
     Dates: start: 201904, end: 201906
  4. OFEV [Suspect]
     Active Substance: NINTEDANIB
     Dates: start: 202001
  5. OFEV [Suspect]
     Active Substance: NINTEDANIB
     Dates: start: 201903, end: 201904
  6. OFEV [Suspect]
     Active Substance: NINTEDANIB
     Dates: start: 2019, end: 202001

REACTIONS (5)
  - Pulmonary hypertension [Not Recovered/Not Resolved]
  - Diarrhoea [Recovering/Resolving]
  - Diarrhoea [Recovering/Resolving]
  - Hepatic enzyme increased [Not Recovered/Not Resolved]
  - Diarrhoea [Recovered/Resolved]

NARRATIVE: CASE EVENT DATE: 2019
